FAERS Safety Report 10157393 (Version 2)
Quarter: 2014Q2

REPORT INFORMATION
  Report Type: Report from Study
  Country: CA (occurrence: CA)
  Receive Date: 20140507
  Receipt Date: 20140606
  Transmission Date: 20141212
  Serious: Yes (Other)
  Sender: FDA-Public Use
  Company Number: CA-JNJFOC-20140500270

PATIENT
  Sex: Male
  Weight: 72.58 kg

DRUGS (2)
  1. REMICADE [Suspect]
     Indication: CROHN^S DISEASE
     Dosage: STOP DATE: 11-JUN-2014
     Route: 042
     Dates: start: 200909
  2. REMICADE [Suspect]
     Indication: CROHN^S DISEASE
     Route: 042
     Dates: start: 20090801

REACTIONS (1)
  - Drug effect incomplete [Unknown]
